FAERS Safety Report 17171118 (Version 2)
Quarter: 2020Q4

REPORT INFORMATION
  Report Type: Spontaneous
  Country: US (occurrence: US)
  Receive Date: 20191218
  Receipt Date: 20201209
  Transmission Date: 20210113
  Serious: Yes (Hospitalization, Other)
  Sender: FDA-Public Use
  Company Number: US-SUPERNUS PHARMACEUTICALS, INC.-2019SUP00476

PATIENT
  Age: 55 Year
  Sex: Female
  Weight: 63.95 kg

DRUGS (3)
  1. TROKENDI XR [Suspect]
     Active Substance: TOPIRAMATE
     Indication: MIGRAINE
     Dosage: 100 MG, 1X/DAY
     Route: 048
     Dates: start: 201708, end: 20181128
  2. UNSPECIFIED ANTIDEPRESSANT MEDICATIONS [Suspect]
     Active Substance: UNSPECIFIED INGREDIENT
     Indication: DEPRESSION
  3. HYDROCODONE [Suspect]
     Active Substance: HYDROCODONE
     Dosage: 16 TABLETS
     Dates: start: 20180709, end: 20180709

REACTIONS (5)
  - Suicidal ideation [Recovered/Resolved]
  - Suicide attempt [Recovered/Resolved]
  - Feeling abnormal [Unknown]
  - Somnolence [Unknown]
  - Major depression [Recovering/Resolving]

NARRATIVE: CASE EVENT DATE: 201807
